FAERS Safety Report 7368789-X (Version None)
Quarter: 2011Q1

REPORT INFORMATION
  Report Type: 
  Country: None (occurrence: None)
  Receive Date: 20110323
  Receipt Date: 20110317
  Transmission Date: 20110831
  Serious: No
  Sender: FDA-Public Use
  Company Number: US-TEVA-272340USA

PATIENT
  Sex: Female

DRUGS (2)
  1. BACTRIM [Concomitant]
     Indication: INFECTION
  2. ALBUTEROL SULFATE AUTOHALER [Suspect]
     Dosage: EVERY 4-6 HOURS
     Route: 055
     Dates: start: 20110314, end: 20110314

REACTIONS (2)
  - TACHYCARDIA [None]
  - URTICARIA [None]
